FAERS Safety Report 9264803 (Version 1)
Quarter: 2013Q2

REPORT INFORMATION
  Report Type: Spontaneous
  Country: DE (occurrence: None)
  Receive Date: 20130429
  Receipt Date: 20130429
  Transmission Date: 20140414
  Serious: Yes (Hospitalization)
  Sender: FDA-Public Use
  Company Number: AUR-APL-2013-03440

PATIENT
  Age: 71 Year
  Sex: Female

DRUGS (4)
  1. MIRTAZAPINE (MIRTAZAPINE) [Suspect]
     Indication: PRODUCT USED FOR UNKNOWN INDICATION
     Dosage: 1 D
     Route: 048
     Dates: start: 20120824, end: 20120828
  2. LORAZEPAM (LORAZEPAM) [Concomitant]
  3. RAMIPRIL (RAMIPRIL) [Concomitant]
  4. HYDROCHLORTHIAZID (HYDROCHLOROTHIAZIDE) [Concomitant]

REACTIONS (2)
  - Dermatitis allergic [None]
  - Rash [None]
